FAERS Safety Report 8816661 (Version 1)
Quarter: 2012Q4

REPORT INFORMATION
  Report Type: Spontaneous
  Country: ES (occurrence: None)
  Receive Date: 20120928
  Receipt Date: 20120928
  Transmission Date: 20130627
  Serious: Yes (Hospitalization)
  Sender: FDA-Public Use
  Company Number: DSA_59784_2012

PATIENT
  Age: 83 Year
  Sex: Female

DRUGS (3)
  1. DILTIAZEM HYDROCHLORIDE [Suspect]
     Indication: HYPERTENSIVE HEART DISEASE
     Route: 048
     Dates: start: 2011, end: 20110826
  2. DILTIAZEM HYDROCHLORIDE [Suspect]
     Indication: HYPERTENSIVE HEART DISEASE
  3. DORZOLAMIDE HYDROCHLORIDE (+) TIMOLOL MALEATE [Suspect]
     Indication: GLAUCOMA
     Route: 047
     Dates: start: 2011, end: 20120826

REACTIONS (3)
  - Syncope [None]
  - Nodal rhythm [None]
  - Atrial fibrillation [None]
